FAERS Safety Report 26130529 (Version 1)
Quarter: 2025Q4

REPORT INFORMATION
  Report Type: Other
  Country: TW (occurrence: TW)
  Receive Date: 20251208
  Receipt Date: 20251208
  Transmission Date: 20260117
  Serious: Yes (Hospitalization, Other)
  Sender: COREPHARMA LLC
  Company Number: TW-CorePharma LLC-2190067

PATIENT
  Age: 13 Month
  Sex: Male
  Weight: 9 kg

DRUGS (2)
  1. AMLODIPINE BESYLATE [Suspect]
     Active Substance: AMLODIPINE BESYLATE
     Indication: Hypertension
  2. DOXAZOSIN [Concomitant]
     Active Substance: DOXAZOSIN MESYLATE

REACTIONS (2)
  - Ascites [Recovered/Resolved]
  - Product use issue [Unknown]
